FAERS Safety Report 12493466 (Version 1)
Quarter: 2016Q2

REPORT INFORMATION
  Report Type: Report from Study
  Country: US (occurrence: US)
  Receive Date: 20160623
  Receipt Date: 20160623
  Transmission Date: 20160815
  Serious: Yes (Hospitalization, Other)
  Sender: FDA-Public Use
  Company Number: US-GILEAD-2016-0209320

PATIENT
  Age: 74 Year
  Sex: Female

DRUGS (3)
  1. IDELALISIB [Suspect]
     Active Substance: IDELALISIB
     Indication: CHRONIC LYMPHOCYTIC LEUKAEMIA
     Dosage: 150 MG, BID
     Route: 048
     Dates: start: 20160322
  2. IDELALISIB [Suspect]
     Active Substance: IDELALISIB
     Dosage: 150 MG, BID
     Route: 048
     Dates: start: 20160513
  3. OMEPRAZOLE. [Concomitant]
     Active Substance: OMEPRAZOLE
     Dosage: 20 MG, UNK

REACTIONS (14)
  - Blood sodium increased [Unknown]
  - Lymphocyte count increased [Unknown]
  - Stomatitis [Unknown]
  - Productive cough [Unknown]
  - Cardiac failure congestive [Unknown]
  - Fatigue [Unknown]
  - White blood cell count decreased [Unknown]
  - Gastrooesophageal reflux disease [Unknown]
  - Pulmonary hypertension [Unknown]
  - Salivary hypersecretion [Unknown]
  - Dysphonia [Unknown]
  - Diarrhoea [Unknown]
  - Constipation [Unknown]
  - Pyrexia [Unknown]
